FAERS Safety Report 5007394-7 (Version None)
Quarter: 2006Q2

REPORT INFORMATION
  Report Type: 
  Country: None (occurrence: None)
  Receive Date: 20060518
  Receipt Date: 20060518
  Transmission Date: 20061013
  Serious: Yes (Hospitalization)
  Sender: FDA-Public Use
  Company Number: None

PATIENT
  Age: 49 Year
  Sex: Male
  Weight: 60.3 kg

DRUGS (6)
  1. NAPROXEN [Suspect]
  2. ASPIRIN [Concomitant]
  3. MULTIVITAMIN/MINERALS THERAPEUT CAP [Concomitant]
  4. POTASSIUM CHLORIDE [Concomitant]
  5. THIAMINE HCL [Concomitant]
  6. GLIPIZIDE [Concomitant]

REACTIONS (1)
  - URTICARIA [None]
